FAERS Safety Report 19304050 (Version 7)
Quarter: 2023Q4

REPORT INFORMATION
  Report Type: Report from Study
  Country: CA (occurrence: CA)
  Receive Date: 20210525
  Receipt Date: 20231109
  Transmission Date: 20240109
  Serious: Yes (Hospitalization)
  Sender: FDA-Public Use
  Company Number: CA-TAKEDA-2020TUS041256

PATIENT
  Age: 37 Year
  Sex: Male

DRUGS (14)
  1. VEDOLIZUMAB [Suspect]
     Active Substance: VEDOLIZUMAB
     Indication: Colitis ulcerative
     Dosage: 300 MILLIGRAM
     Route: 042
     Dates: start: 20200625
  2. VEDOLIZUMAB [Suspect]
     Active Substance: VEDOLIZUMAB
     Indication: Crohn^s disease
     Dosage: 300 MILLIGRAM, Q4WEEKS
     Route: 042
     Dates: start: 20201029
  3. VEDOLIZUMAB [Suspect]
     Active Substance: VEDOLIZUMAB
     Indication: Colitis microscopic
     Dosage: 300 MILLIGRAM, Q4WEEKS
     Route: 042
  4. VEDOLIZUMAB [Suspect]
     Active Substance: VEDOLIZUMAB
     Dosage: 300 MILLIGRAM, Q4WEEKS
     Route: 042
  5. VEDOLIZUMAB [Suspect]
     Active Substance: VEDOLIZUMAB
     Dosage: 300 MILLIGRAM, Q4WEEKS
     Route: 042
  6. VEDOLIZUMAB [Suspect]
     Active Substance: VEDOLIZUMAB
     Dosage: 300 MILLIGRAM, Q4WEEKS
     Route: 042
  7. CREON [Concomitant]
     Active Substance: PANCRELIPASE AMYLASE\PANCRELIPASE LIPASE\PANCRELIPASE PROTEASE
     Indication: Pancreatitis
     Dosage: 25 MILLIGRAM, BID
  8. SELENIUM SULFIDE [Concomitant]
     Active Substance: SELENIUM SULFIDE
     Indication: Fungal skin infection
     Dosage: UNK
  9. RABEPRAZOLE [Concomitant]
     Active Substance: RABEPRAZOLE
     Dosage: 20 MILLIGRAM, BID
  10. INDOMETHACIN [Concomitant]
     Active Substance: INDOMETHACIN
     Dosage: 50 MILLIGRAM, QID
  11. MORPHINE SULFATE [Concomitant]
     Active Substance: MORPHINE SULFATE
     Dosage: UNK
  12. ONDANSETRON [Concomitant]
     Active Substance: ONDANSETRON
     Indication: Vomiting
     Dosage: 8 MILLIGRAM, TID
  13. TACROLIMUS [Concomitant]
     Active Substance: TACROLIMUS
     Dosage: UNK
  14. SUMATRIPTAN BETA [Concomitant]
     Dosage: 2.5 MILLIGRAM

REACTIONS (7)
  - Pus in stool [Unknown]
  - Abdominal pain [Unknown]
  - Vomiting [Unknown]
  - Drug ineffective [Unknown]
  - Weight decreased [Unknown]
  - Frequent bowel movements [Unknown]
  - Off label use [Unknown]

NARRATIVE: CASE EVENT DATE: 20200625
